FAERS Safety Report 14071407 (Version 1)
Quarter: 2017Q4

REPORT INFORMATION
  Report Type: Spontaneous
  Country: US (occurrence: US)
  Receive Date: 20171010
  Receipt Date: 20171010
  Transmission Date: 20180321
  Serious: No
  Sender: FDA-Public Use
  Company Number: US-SA-2017SA119855

PATIENT
  Age: 82 Year
  Sex: Male

DRUGS (6)
  1. CLOBETASOL [Concomitant]
     Active Substance: CLOBETASOL
  2. METHYLPREDNISOLONE. [Concomitant]
     Active Substance: METHYLPREDNISOLONE
  3. DUPIXENT [Suspect]
     Active Substance: DUPILUMAB
     Indication: DERMATITIS ATOPIC
     Dosage: LOADING DOSE
     Route: 065
     Dates: start: 20170509, end: 20170612
  4. ULTRAVATE [Concomitant]
     Active Substance: HALOBETASOL PROPIONATE
  5. BETAMETHASONE. [Concomitant]
     Active Substance: BETAMETHASONE
  6. TACROLIMUS. [Concomitant]
     Active Substance: TACROLIMUS

REACTIONS (2)
  - Headache [Not Recovered/Not Resolved]
  - Temporal arteritis [Not Recovered/Not Resolved]
